FAERS Safety Report 10044258 (Version 1)
Quarter: 2014Q1

REPORT INFORMATION
  Report Type: Spontaneous
  Country: IT (occurrence: None)
  Receive Date: 20140326
  Receipt Date: 20140326
  Transmission Date: 20141002
  Serious: Yes (Death)
  Sender: FDA-Public Use
  Company Number: 2254351

PATIENT
  Sex: Female

DRUGS (4)
  1. CARBOPLATIN [Suspect]
     Indication: OVARIAN CANCER
     Dosage: AUC 6 MG/ML PER MIN (1 WEEK), INTRAVENOUS (NOT OTHERWISE SPECIFIED)?
     Route: 042
  2. CARBOPLATIN [Suspect]
     Indication: OVARIAN CANCER
     Dosage: AUC 6 MG/ML PER MIN (1 WEEK), INTRAVENOUS (NOT OTHERWISE SPECIFIED)?
     Route: 042
  3. PACLITAXEL [Suspect]
     Indication: OVARIAN CANCER
     Dosage: 175 MG/M 2 MILLIGRAM(S)/SQ. METER (1 WEEK), INTRAVENOUS (NOT OTHERWISE SPECIFIED)?
     Route: 042
  4. PACLITAXEL [Suspect]
     Indication: OVARIAN CANCER
     Dosage: 175 MG/M 2 MILLIGRAM(S)/SQ. METER (1 WEEK), INTRAVENOUS (NOT OTHERWISE SPECIFIED)?
     Route: 042

REACTIONS (1)
  - Febrile neutropenia [None]
